FAERS Safety Report 5916376-X (Version None)
Quarter: 2008Q4

REPORT INFORMATION
  Report Type: 
  Country: None (occurrence: None)
  Receive Date: 20081013
  Receipt Date: 20081006
  Transmission Date: 20090506
  Serious: Yes (Hospitalization)
  Sender: FDA-Public Use
  Company Number: TR-ELI_LILLY_AND_COMPANY-TR200810001717

PATIENT
  Age: 52 Year
  Sex: Male

DRUGS (5)
  1. HUMULIN 70/30 [Suspect]
     Indication: DIABETES MELLITUS
     Dosage: 18 IU, EACH MORNING
     Route: 058
  2. HUMULIN 70/30 [Suspect]
     Dosage: 18 IU, EACH EVENING
     Route: 058
  3. CARDURA [Concomitant]
     Indication: HYPERTENSION
     Dosage: UNK, DAILY (1/D)
     Route: 048
     Dates: start: 20030101
  4. TENORETIC 100 [Concomitant]
     Indication: HYPERTENSION
     Dosage: UNK, DAILY (1/D)
     Route: 048
     Dates: start: 20030101
  5. LANSOR [Concomitant]
     Indication: GASTRIC DISORDER
     Dosage: UNK, DAILY (1/D)
     Route: 048
     Dates: start: 20030101

REACTIONS (1)
  - INFLAMMATION [None]
